FAERS Safety Report 21433684 (Version 1)
Quarter: 2022Q4

REPORT INFORMATION
  Report Type: Spontaneous
  Country: US (occurrence: US)
  Receive Date: 20221010
  Receipt Date: 20221010
  Transmission Date: 20230113
  Serious: No
  Sender: FDA-Public Use
  Company Number: ENDG21-08619

PATIENT
  Sex: Male

DRUGS (7)
  1. CHOLESTYRAMINE LIGHT [Suspect]
     Active Substance: CHOLESTYRAMINE
     Indication: Diarrhoea
     Dosage: 1 DF, OD (AT NIGHT)
     Route: 065
     Dates: end: 2021
  2. CHOLESTYRAMINE LIGHT [Suspect]
     Active Substance: CHOLESTYRAMINE
     Dosage: 1 DF, OD
     Route: 065
     Dates: start: 2021
  3. PREVALITE [Suspect]
     Active Substance: CHOLESTYRAMINE
     Indication: Diarrhoea
     Dosage: 1 DF, OD (AT NIGHT)
     Route: 065
     Dates: end: 2021
  4. NALTREXONE [Concomitant]
     Active Substance: NALTREXONE
     Indication: Product used for unknown indication
     Dosage: UNK UNKNOWN, UNKNOWN (LOW DOSE)
     Route: 065
  5. LISINOPRIL [Concomitant]
     Active Substance: LISINOPRIL
     Indication: Product used for unknown indication
     Dosage: UNK UNKNOWN, UNKNOWN
     Route: 065
  6. PROPRANOLOL [Concomitant]
     Active Substance: PROPRANOLOL HYDROCHLORIDE
     Indication: Product used for unknown indication
     Dosage: UNK UNKNOWN, UNKNOWN
     Route: 065
  7. VITAMINS [Concomitant]
     Active Substance: VITAMINS
     Indication: Product used for unknown indication
     Dosage: UNK UNKNOWN, UNKNOWN
     Route: 065

REACTIONS (7)
  - Blood glucose increased [Unknown]
  - Gastrointestinal disorder [Unknown]
  - Gastrointestinal sounds abnormal [Unknown]
  - Reaction to food additive [Unknown]
  - Abdominal discomfort [Unknown]
  - Product substitution issue [Unknown]
  - Off label use [Not Recovered/Not Resolved]
